FAERS Safety Report 20211453 (Version 4)
Quarter: 2022Q2

REPORT INFORMATION
  Report Type: Spontaneous
  Country: JP (occurrence: JP)
  Receive Date: 20211221
  Receipt Date: 20220614
  Transmission Date: 20220721
  Serious: Yes (Other)
  Sender: FDA-Public Use
  Company Number: JP-ABBVIE-21K-087-4206746-00

PATIENT
  Age: 30 Year
  Sex: Female
  Weight: 40 kg

DRUGS (8)
  1. HUMIRA [Suspect]
     Active Substance: ADALIMUMAB
     Indication: Pyoderma gangrenosum
     Route: 058
     Dates: start: 20210915, end: 20210915
  2. HUMIRA [Suspect]
     Active Substance: ADALIMUMAB
     Route: 058
     Dates: start: 20210929, end: 20210929
  3. HUMIRA [Suspect]
     Active Substance: ADALIMUMAB
     Route: 058
     Dates: start: 20211013
  4. TRANEXAMIC ACID [Concomitant]
     Active Substance: TRANEXAMIC ACID
     Indication: Haemorrhage
     Route: 048
     Dates: start: 20210310
  5. MEFENAMIC ACID [Concomitant]
     Active Substance: MEFENAMIC ACID
     Indication: Haemorrhage
     Route: 048
     Dates: start: 20210818
  6. RELUGOLIX [Concomitant]
     Active Substance: RELUGOLIX
     Indication: Haemorrhage
     Route: 048
     Dates: start: 20210818
  7. CLOMIPHENE [Concomitant]
     Active Substance: CLOMIPHENE
     Indication: Product used for unknown indication
     Route: 048
     Dates: start: 20220302, end: 20220413
  8. CLOMIPHENE [Concomitant]
     Active Substance: CLOMIPHENE
     Route: 048
     Dates: start: 20220413

REACTIONS (2)
  - Uterine haemorrhage [Not Recovered/Not Resolved]
  - Anaemia [Not Recovered/Not Resolved]

NARRATIVE: CASE EVENT DATE: 20211001
